FAERS Safety Report 8137549 (Version 2)
Quarter: 2013Q1

REPORT INFORMATION
  Report Type: Spontaneous
  Country: US (occurrence: US)
  Receive Date: 20110915
  Receipt Date: 20130212
  Transmission Date: 20140127
  Serious: Yes (Other)
  Sender: FDA-Public Use
  Company Number: US-ROCHE-802074

PATIENT
  Age: 28 Year
  Sex: Female
  Weight: 52.21 kg

DRUGS (5)
  1. ACCUTANE [Suspect]
     Indication: ACNE
     Route: 048
     Dates: start: 1996, end: 1997
  2. ACCUTANE [Suspect]
     Route: 048
     Dates: start: 19970819, end: 19971130
  3. IBUPROFEN [Concomitant]
  4. AUGMENTIN [Concomitant]
  5. CLOXACILLIN [Concomitant]

REACTIONS (10)
  - Inflammatory bowel disease [Unknown]
  - Depression [Unknown]
  - Injury [Unknown]
  - Colitis ulcerative [Unknown]
  - Melanocytic naevus [Unknown]
  - Blood triglycerides increased [Unknown]
  - Dry skin [Unknown]
  - Blood cholesterol increased [Unknown]
  - Chest pain [Unknown]
  - Vision blurred [Unknown]
